FAERS Safety Report 7274911-6 (Version None)
Quarter: 2011Q1

REPORT INFORMATION
  Report Type: 
  Country: None (occurrence: None)
  Receive Date: 20110204
  Receipt Date: 20110124
  Transmission Date: 20110831
  Serious: Yes (Hospitalization)
  Sender: FDA-Public Use
  Company Number: DE-JNJFOC-20110200880

PATIENT
  Sex: Male

DRUGS (3)
  1. LYRICA [Concomitant]
     Indication: PAIN
     Route: 065
  2. PALEXIA RETARD [Suspect]
     Route: 048
  3. PALEXIA RETARD [Suspect]
     Indication: PAIN
     Route: 048

REACTIONS (1)
  - MONOPLEGIA [None]
